FAERS Safety Report 5690732-X (Version None)
Quarter: 2008Q2

REPORT INFORMATION
  Report Type: 
  Country: None (occurrence: None)
  Receive Date: 20080401
  Receipt Date: 20080319
  Transmission Date: 20081010
  Serious: Yes (Other)
  Sender: FDA-Public Use
  Company Number: US-ELI_LILLY_AND_COMPANY-US200803004651

PATIENT
  Age: 65 Year
  Sex: Male

DRUGS (13)
  1. STRATTERA [Suspect]
     Indication: DISTURBANCE IN ATTENTION
     Dosage: 18 MG, UNK
     Dates: start: 20060901
  2. STRATTERA [Suspect]
     Dosage: 76 MG, UNK
  3. STRATTERA [Suspect]
     Dosage: 58 MG, DAILY (1/D)
  4. NEXIUM [Concomitant]
     Dosage: 40 MEQ, DAILY (1/D)
  5. FLUOXETINE HYDROCHLORIDE [Concomitant]
     Dosage: 35 MG, DAILY (1/D)
  6. ASTELIN [Concomitant]
  7. NITROGLYCERIN [Concomitant]
  8. VIAGRA [Concomitant]
  9. AMBIEN [Concomitant]
  10. AVODART [Concomitant]
     Dosage: 0.5 MG, UNK
  11. FLOMAX [Concomitant]
     Dosage: 0.4 MG, UNK
  12. LIPITOR [Concomitant]
     Dosage: 30 MG, DAILY (1/D)
  13. NADOLOL [Concomitant]

REACTIONS (2)
  - BLOOD PRESSURE INCREASED [None]
  - STRESS [None]
